FAERS Safety Report 4733547-9 (Version None)
Quarter: 2005Q3

REPORT INFORMATION
  Report Type: 
  Country: None (occurrence: None)
  Receive Date: 20050803
  Receipt Date: 20050803
  Transmission Date: 20060218
  Serious: No
  Sender: FDA-Public Use
  Company Number: None

PATIENT
  Age: 78 Year
  Sex: Male

DRUGS (10)
  1. ZOCOR [Suspect]
     Indication: HYPERCHOLESTEROLAEMIA
     Dosage: 40MG QD, PO
     Route: 048
     Dates: start: 20040831, end: 20050422
  2. ATENOLOL [Concomitant]
  3. DIGOXIN [Concomitant]
  4. DOCUSATE SODIUM [Concomitant]
  5. FOSINOPRIL SODIUM [Concomitant]
  6. CALCIPOTNENE [Concomitant]
  7. LOW TAR [Concomitant]
  8. LCD OINTMENT [Concomitant]
  9. PROPAFERONE [Concomitant]
  10. SENNOSIDES [Concomitant]

REACTIONS (3)
  - HYPOAESTHESIA [None]
  - PAIN [None]
  - PERIPHERAL SENSORY NEUROPATHY [None]
